FAERS Safety Report 8794889 (Version 2)
Quarter: 2015Q2

REPORT INFORMATION
  Report Type: Report from Study
  Country: US (occurrence: US)
  Receive Date: 20120918
  Receipt Date: 20150617
  Transmission Date: 20150821
  Serious: Yes (Death)
  Sender: FDA-Public Use
  Company Number: US-ROCHE-1104124

PATIENT
  Sex: Female
  Weight: 59.5 kg

DRUGS (11)
  1. AVASTIN [Suspect]
     Active Substance: BEVACIZUMAB
     Indication: GENITAL NEOPLASM MALIGNANT FEMALE
     Dosage: RECEIVED ON 16/OCT/2006 AND 02/NOV/2006
     Route: 042
  2. TAGAMET [Concomitant]
     Active Substance: CIMETIDINE
     Route: 042
  3. CATHFLO ACTIVASE [Concomitant]
     Active Substance: ALTEPLASE
     Route: 050
  4. CYTOXAN [Concomitant]
     Active Substance: CYCLOPHOSPHAMIDE
     Route: 048
  5. ARANESP [Concomitant]
     Active Substance: DARBEPOETIN ALFA
     Route: 058
  6. AVASTIN [Suspect]
     Active Substance: BEVACIZUMAB
     Indication: MALIGNANT NEOPLASM OF UTERINE ADNEXA
     Dosage: RECEIVED ON 18/JAN/2007
     Route: 042
  7. CISPLATIN. [Concomitant]
     Active Substance: CISPLATIN
     Route: 065
  8. ALOXI [Concomitant]
     Active Substance: PALONOSETRON HYDROCHLORIDE
  9. DECADRON [Concomitant]
     Active Substance: DEXAMETHASONE
     Route: 042
  10. BENADRYL [Concomitant]
     Active Substance: DIPHENHYDRAMINE HYDROCHLORIDE
     Route: 042
  11. AVASTIN [Suspect]
     Active Substance: BEVACIZUMAB
     Dosage: RECEIVED ON 31/JAN/2007
     Route: 042

REACTIONS (2)
  - Death [Fatal]
  - Off label use [Unknown]
